FAERS Safety Report 9804774 (Version 1)
Quarter: 2014Q1

REPORT INFORMATION
  Report Type: Spontaneous
  Country: US (occurrence: US)
  Receive Date: 20140108
  Receipt Date: 20140108
  Transmission Date: 20141002
  Serious: Yes (Hospitalization, Other)
  Sender: FDA-Public Use
  Company Number: US-RB-062356-14

PATIENT
  Age: 25 Year
  Sex: Female
  Weight: 78.2 kg

DRUGS (5)
  1. SUBUTEX [Suspect]
     Indication: DRUG DEPENDENCE
     Route: 065
     Dates: end: 2013
  2. SUBUTEX [Suspect]
     Route: 060
     Dates: start: 2013
  3. NICOTINE [Concomitant]
     Indication: PRODUCT USED FOR UNKNOWN INDICATION
     Dosage: DOSING DETAILS UNKNOWN
     Route: 065
  4. PROMETHAZINE HYDROCHLORIDE [Concomitant]
     Indication: NAUSEA
     Dosage: ONE TABLET BY MOUTH EVERY 6 HOURS AS NEEDED FOR NAUSEA
     Route: 048
  5. FLINTSTONES COMPLETE [Concomitant]
     Indication: PRODUCT USED FOR UNKNOWN INDICATION
     Dosage: 2 DAILY PO CHEW
     Route: 048

REACTIONS (6)
  - Maternal exposure during pregnancy [Recovered/Resolved]
  - Prolonged rupture of membranes [Recovered/Resolved]
  - Postpartum haemorrhage [Recovered/Resolved]
  - Haemorrhagic anaemia [Unknown]
  - Dyspnoea [Not Recovered/Not Resolved]
  - Gait disturbance [Not Recovered/Not Resolved]
